FAERS Safety Report 17457116 (Version 1)
Quarter: 2020Q1

REPORT INFORMATION
  Report Type: Report from Study
  Country: US (occurrence: US)
  Receive Date: 20200225
  Receipt Date: 20200225
  Transmission Date: 20200409
  Serious: Yes (Death)
  Sender: FDA-Public Use
  Company Number: US-MYLANLABS-2020M1020857

PATIENT

DRUGS (5)
  1. VANCOMYCIN [Suspect]
     Active Substance: VANCOMYCIN
     Indication: ANTIBIOTIC THERAPY
     Route: 065
  2. CYTARABINE. [Concomitant]
     Active Substance: CYTARABINE
     Indication: ACUTE MYELOID LEUKAEMIA
     Dosage: ON DAYS 1 THROUGH 7
     Route: 042
  3. PIPERACILLIN/TAZOBACTAM [Suspect]
     Active Substance: PIPERACILLIN SODIUM\TAZOBACTAM SODIUM
     Indication: ANTIBIOTIC THERAPY
     Route: 065
  4. DAUNORUBICIN [Concomitant]
     Active Substance: DAUNORUBICIN
     Indication: ACUTE MYELOID LEUKAEMIA
     Dosage: ON DAYS 1 THROUGH 3
     Route: 042
  5. SELINEXOR [Concomitant]
     Active Substance: SELINEXOR
     Indication: ACUTE MYELOID LEUKAEMIA
     Dosage: ON DAYS 1, 3, 8, 10, 15, AND 17
     Route: 048

REACTIONS (1)
  - Renal tubular necrosis [Fatal]
